FAERS Safety Report 13317744 (Version 1)
Quarter: 2017Q1

REPORT INFORMATION
  Report Type: Spontaneous
  Country: US (occurrence: US)
  Receive Date: 20170309
  Receipt Date: 20170309
  Transmission Date: 20170428
  Serious: Yes (Disabling, Other)
  Sender: FDA-Public Use
  Company Number: None

PATIENT
  Age: 5 Year
  Sex: Female
  Weight: 19.8 kg

DRUGS (4)
  1. MIRALAX [Suspect]
     Active Substance: POLYETHYLENE GLYCOL 3350
     Indication: CONSTIPATION
     Dosage: 2 TABLESPOON(S); DRANK IN WATER?
     Dates: start: 20140101, end: 20170227
  2. FIBER GUMMIE [Concomitant]
  3. PROBIOTIC [Concomitant]
     Active Substance: PROBIOTICS NOS
  4. MAGNESIUM [Concomitant]
     Active Substance: MAGNESIUM

REACTIONS (11)
  - Abnormal behaviour [None]
  - Sleep disorder [None]
  - Nightmare [None]
  - Obsessive-compulsive disorder [None]
  - Intentional self-injury [None]
  - Depression [None]
  - Aggression [None]
  - Anxiety [None]
  - Mental disorder [None]
  - Pain [None]
  - Scratch [None]

NARRATIVE: CASE EVENT DATE: 20141201
